FAERS Safety Report 8472529-0 (Version None)
Quarter: 2012Q2

REPORT INFORMATION
  Report Type: 
  Country: None (occurrence: None)
  Receive Date: 20120627
  Receipt Date: 20120622
  Transmission Date: 20120825
  Serious: Yes (Other)
  Sender: FDA-Public Use
  Company Number: US-PFIZER INC-2012151064

PATIENT
  Sex: Female
  Weight: 68.027 kg

DRUGS (5)
  1. NEURONTIN [Suspect]
     Dosage: 600 MG, 4X/DAY
     Route: 048
     Dates: start: 20120101
  2. NEURONTIN [Suspect]
     Indication: HYPOAESTHESIA
     Dosage: 300 MG, 3X/DAY
     Route: 048
     Dates: start: 20120201, end: 20120301
  3. LORTAB [Concomitant]
     Dosage: UNK
  4. PERCOCET [Concomitant]
     Dosage: UNK
  5. NEURONTIN [Suspect]
     Indication: PAIN IN EXTREMITY
     Dosage: 300 MG, 4X/DAY
     Route: 048
     Dates: start: 20120301, end: 20120101

REACTIONS (7)
  - NECK PAIN [None]
  - DRUG INEFFECTIVE [None]
  - MOVEMENT DISORDER [None]
  - HYPOAESTHESIA [None]
  - PAIN IN EXTREMITY [None]
  - BACK PAIN [None]
  - PAIN [None]
